FAERS Safety Report 19787104 (Version 1)
Quarter: 2021Q3

REPORT INFORMATION
  Report Type: Spontaneous
  Country: CN (occurrence: CN)
  Receive Date: 20210903
  Receipt Date: 20210903
  Transmission Date: 20211014
  Serious: Yes (Other)
  Sender: FDA-Public Use
  Company Number: CN-BAYER-2021-205905

PATIENT
  Age: 75 Year
  Sex: Female
  Weight: 85 kg

DRUGS (11)
  1. BIVALIRUDIN. [Suspect]
     Active Substance: BIVALIRUDIN
     Indication: ANGINA UNSTABLE
     Dosage: 0.25 G, QD, PUMP
     Route: 050
     Dates: start: 20201015, end: 20201015
  2. TIROFIBAN HYDROCHLORIDE. [Suspect]
     Active Substance: TIROFIBAN HYDROCHLORIDE
     Indication: ANGINA UNSTABLE
     Dosage: 50 ML, QD
     Route: 058
     Dates: start: 20201015, end: 20201016
  3. METOPROLOL TARTRATE. [Concomitant]
     Active Substance: METOPROLOL TARTRATE
     Indication: ANGINA UNSTABLE
     Dosage: 12.5 MG, BID
     Route: 048
     Dates: start: 20201014, end: 20201021
  4. BAYASPIRIN 100 MG [Suspect]
     Active Substance: ASPIRIN
     Dosage: 100 MG, QD
     Route: 048
     Dates: start: 20201014, end: 20201016
  5. ULTRAVIST [Suspect]
     Active Substance: IOPROMIDE
     Indication: ANGIOGRAM
     Dosage: 5?8ML, ONCE
     Route: 040
     Dates: start: 20201015, end: 20201015
  6. CLOPIDOGREL HYDROGEN SULPHATE [Suspect]
     Active Substance: CLOPIDOGREL BISULFATE
     Indication: ANGINA UNSTABLE
     Dosage: 75 MG, QD
     Dates: start: 20201014, end: 20201016
  7. TELMISARTAN. [Concomitant]
     Active Substance: TELMISARTAN
     Dosage: 80 MG, QD
     Route: 048
  8. ISOSORBIDE DINITRATE. [Concomitant]
     Active Substance: ISOSORBIDE DINITRATE
     Indication: ANGINA UNSTABLE
     Dosage: 15 MG, QID
     Route: 048
     Dates: start: 20201014, end: 20201021
  9. HEPARIN SODIUM. [Suspect]
     Active Substance: HEPARIN SODIUM
     Indication: ANGINA UNSTABLE
     Dosage: 12500 U, QD
     Dates: start: 20201015, end: 20201015
  10. ENOXAPARIN SODIUM. [Suspect]
     Active Substance: ENOXAPARIN SODIUM
     Indication: ANGINA UNSTABLE
     Dosage: 4000 U, BID
     Route: 058
     Dates: start: 20201015, end: 20201016
  11. LANSOPRAZOLE. [Concomitant]
     Active Substance: LANSOPRAZOLE
     Dosage: 30 MG, QD
     Route: 041

REACTIONS (3)
  - Subcutaneous haematoma [Recovering/Resolving]
  - Haemorrhage subcutaneous [Recovering/Resolving]
  - Labelled drug-drug interaction medication error [None]

NARRATIVE: CASE EVENT DATE: 20201015
